FAERS Safety Report 8490462-5 (Version None)
Quarter: 2012Q3

REPORT INFORMATION
  Report Type: 
  Country: None (occurrence: None)
  Receive Date: 20120705
  Receipt Date: 20120626
  Transmission Date: 20120928
  Serious: Yes (Hospitalization, Other)
  Sender: FDA-Public Use
  Company Number: US-SANOFI-AVENTIS-2012SA045793

PATIENT
  Age: 75 Year
  Sex: Female

DRUGS (5)
  1. LANTUS [Suspect]
     Dosage: DOSE:50 UNIT(S)
     Route: 058
  2. LANTUS [Suspect]
     Dosage: DOSE:70 UNIT(S)
     Route: 058
  3. LANTUS [Suspect]
     Dosage: DOSE:40 UNIT(S)
     Route: 058
  4. LANTUS [Suspect]
     Dosage: DOSE:70 UNIT(S)
     Route: 058
  5. LANTUS [Suspect]
     Dosage: DOSE:60 UNIT(S)
     Route: 058

REACTIONS (2)
  - DEAFNESS [None]
  - SURGERY [None]
